FAERS Safety Report 4538084-2 (Version None)
Quarter: 2004Q4

REPORT INFORMATION
  Report Type: 
  Country: None (occurrence: None)
  Receive Date: 20041221
  Receipt Date: 20041210
  Transmission Date: 20050328
  Serious: Yes (Other)
  Sender: FDA-Public Use
  Company Number: 2004109326

PATIENT
  Age: 19 Year
  Sex: Female

DRUGS (1)
  1. DALTEPARIN (DALTEPARIN) [Suspect]
     Indication: THROMBOSIS PROPHYLAXIS
     Dosage: 2500 UNITS (2500 UNITS, OD), SUBCUTANEOUS
     Route: 058

REACTIONS (3)
  - DEEP VEIN THROMBOSIS [None]
  - DRUG INEFFECTIVE [None]
  - POST PROCEDURAL COMPLICATION [None]
